FAERS Safety Report 9334386 (Version 1)
Quarter: 2013Q2

REPORT INFORMATION
  Report Type: Spontaneous
  Country: US (occurrence: US)
  Receive Date: 20130606
  Receipt Date: 20130606
  Transmission Date: 20140414
  Serious: No
  Sender: FDA-Public Use
  Company Number: US-AMGEN-USASP2013018924

PATIENT
  Age: 91 Year
  Sex: Female
  Weight: 48.07 kg

DRUGS (1)
  1. PROLIA [Suspect]
     Indication: OSTEOPOROSIS
     Dosage: UNK UNK, Q6MO
     Dates: start: 20120627

REACTIONS (2)
  - Arthralgia [Unknown]
  - Musculoskeletal pain [Unknown]
